FAERS Safety Report 8573335-9 (Version None)
Quarter: 2012Q2

REPORT INFORMATION
  Report Type: 
  Country: None (occurrence: None)
  Receive Date: 20120418
  Receipt Date: 20080327
  Transmission Date: 20120825
  Serious: Yes (Hospitalization)
  Sender: FDA-Public Use
  Company Number: PHEH2008US03183

PATIENT
  Sex: Female

DRUGS (1)
  1. DIOVAN HCT [Suspect]
     Indication: HYPERTENSION
     Dosage: 160 MG VAL, 25 MG HCT, QD, ORAL
     Route: 048

REACTIONS (3)
  - CHEST PAIN [None]
  - FATIGUE [None]
  - GAIT DISTURBANCE [None]
